FAERS Safety Report 4649480-7 (Version None)
Quarter: 2005Q2

REPORT INFORMATION
  Report Type: 
  Country: None (occurrence: None)
  Receive Date: 20050331
  Receipt Date: 20050103
  Transmission Date: 20051028
  Serious: No
  Sender: FDA-Public Use
  Company Number: 05P-163-0285195-00

PATIENT
  Age: 62 Year
  Sex: Female
  Weight: 86.1834 kg

DRUGS (8)
  1. HUMIRA [Suspect]
     Indication: RHEUMATOID ARTHRITIS
     Dosage: 40 MG, 1 IN 2 WK, SUBCUTANEOUS
     Route: 058
     Dates: start: 20041221
  2. ESTROGENS CONJUGATED [Concomitant]
  3. SULFASALAZINE [Concomitant]
  4. GABAPENTIN [Concomitant]
  5. HYDROXYCHLOROQUINE PHOSPHATE [Concomitant]
  6. CYMBALTA [Concomitant]
  7. DARVOCET [Concomitant]
  8. IMITREX [Concomitant]

REACTIONS (2)
  - PYREXIA [None]
  - SINUSITIS [None]
